FAERS Safety Report 9384594 (Version 1)
Quarter: 2013Q3

REPORT INFORMATION
  Report Type: Spontaneous
  Country: FR (occurrence: FR)
  Receive Date: 20130705
  Receipt Date: 20130705
  Transmission Date: 20140515
  Serious: Yes (Other)
  Sender: FDA-Public Use
  Company Number: FR-JNJFOC-20130702365

PATIENT
  Age: 76 Year
  Sex: Female

DRUGS (3)
  1. XARELTO [Suspect]
     Indication: THROMBOSIS PROPHYLAXIS
     Route: 048
     Dates: start: 20130523
  2. ODRIK [Suspect]
     Indication: CARDIAC FAILURE
     Route: 048
  3. INSPRA [Suspect]
     Indication: CARDIAC FAILURE
     Route: 048
     Dates: start: 20130521

REACTIONS (3)
  - Oral mucosal erythema [Recovered/Resolved]
  - Hypersensitivity [Recovered/Resolved]
  - Lip swelling [Recovered/Resolved]
